FAERS Safety Report 8848641 (Version 2)
Quarter: 2013Q1

REPORT INFORMATION
  Report Type: Spontaneous
  Country: MX (occurrence: None)
  Receive Date: 20121015
  Receipt Date: 20121108
  Transmission Date: 20140127
  Serious: Yes (Other)
  Sender: FDA-Public Use
  Company Number: AUR-APL-2012-04354

PATIENT
  Age: 44 Year
  Sex: Male

DRUGS (3)
  1. STAVUDINE [Suspect]
     Indication: ANTIRETROVIRAL THERAPY
  2. EFAVIRENZ [Suspect]
     Indication: ANTIRETROVIRAL THERAPY
  3. LAMIVUDINE [Suspect]
     Indication: ANTIRETROVIRAL THERAPY

REACTIONS (9)
  - Cerebral toxoplasmosis [None]
  - Balance disorder [None]
  - Diplopia [None]
  - Vomiting [None]
  - Headache [None]
  - Pyrexia [None]
  - Somnolence [None]
  - Hemiparesis [None]
  - Immune reconstitution inflammatory syndrome [None]
